FAERS Safety Report 24576963 (Version 1)
Quarter: 2024Q4

REPORT INFORMATION
  Report Type: Spontaneous
  Country: CH (occurrence: CH)
  Receive Date: 20241104
  Receipt Date: 20241104
  Transmission Date: 20250115
  Serious: Yes (Other)
  Sender: SK LIFE SCIENCE
  Company Number: CH-ACRAF SpA-2024-036175

PATIENT

DRUGS (3)
  1. XCOPRI [Suspect]
     Active Substance: CENOBAMATE
     Indication: Lennox-Gastaut syndrome
     Dosage: 100 MG/D (1 IN 1 D)
     Route: 065
     Dates: start: 202406, end: 202409
  2. XCOPRI [Suspect]
     Active Substance: CENOBAMATE
     Dosage: 150 MG/D (1 IN 1 D)
     Route: 065
     Dates: start: 202409, end: 202410
  3. VALPROATE [Concomitant]
     Active Substance: VALPROIC ACID
     Indication: Product used for unknown indication
     Dosage: 2000 MG/D (1 IN 1 D)
     Route: 065

REACTIONS (3)
  - Seizure [Unknown]
  - Seizure [Unknown]
  - Off label use [Unknown]
